FAERS Safety Report 11358542 (Version 1)
Quarter: 2015Q3

REPORT INFORMATION
  Report Type: Spontaneous
  Country: US (occurrence: US)
  Receive Date: 20150803
  Receipt Date: 20150803
  Transmission Date: 20151125
  Serious: Yes (Hospitalization)
  Sender: FDA-Public Use
  Company Number: US-ELI_LILLY_AND_COMPANY-US200904002832

PATIENT
  Sex: Male

DRUGS (3)
  1. RISPERIDONE. [Concomitant]
     Active Substance: RISPERIDONE
  2. ZYPREXA [Suspect]
     Active Substance: OLANZAPINE
     Indication: SCHIZOPHRENIA
     Dosage: 30 MG, DAILY (1/D)
     Dates: start: 200903, end: 200904
  3. DEPAKOTE [Concomitant]
     Active Substance: DIVALPROEX SODIUM
     Dosage: 500 MG, 2/D

REACTIONS (2)
  - Diabetic ketoacidosis [Recovering/Resolving]
  - Prescribed overdose [Recovered/Resolved]

NARRATIVE: CASE EVENT DATE: 200903
